FAERS Safety Report 12375954 (Version 1)
Quarter: 2016Q2

REPORT INFORMATION
  Report Type: Spontaneous
  Country: US (occurrence: US)
  Receive Date: 20160517
  Receipt Date: 20160517
  Transmission Date: 20160815
  Serious: Yes (Other)
  Sender: FDA-Public Use
  Company Number: US-GLAXOSMITHKLINE-US2016061585

PATIENT
  Age: 40 Year
  Sex: Female

DRUGS (10)
  1. EVOXAC [Concomitant]
     Active Substance: CEVIMELINE HYDROCHLORIDE
  2. PREDNISONE. [Concomitant]
     Active Substance: PREDNISONE
  3. BENLYSTA [Suspect]
     Active Substance: BELIMUMAB
     Indication: SYSTEMIC LUPUS ERYTHEMATOSUS
     Dosage: UNK
     Route: 042
     Dates: start: 201508
  4. AMBIEN [Concomitant]
     Active Substance: ZOLPIDEM TARTRATE
  5. OPANA [Concomitant]
     Active Substance: OXYMORPHONE HYDROCHLORIDE
  6. CYMBALTA [Concomitant]
     Active Substance: DULOXETINE HYDROCHLORIDE
  7. IMURAN [Concomitant]
     Active Substance: AZATHIOPRINE
  8. AMITRIPTYLINE [Concomitant]
     Active Substance: AMITRIPTYLINE
  9. PROCARDIA [Concomitant]
     Active Substance: NIFEDIPINE
  10. ZANAFLEX [Concomitant]
     Active Substance: TIZANIDINE HYDROCHLORIDE

REACTIONS (3)
  - Drug dose omission [Unknown]
  - Foot operation [Recovering/Resolving]
  - Streptococcal urinary tract infection [Recovered/Resolved]

NARRATIVE: CASE EVENT DATE: 2015
